FAERS Safety Report 6683667-7 (Version None)
Quarter: 2010Q2

REPORT INFORMATION
  Report Type: 
  Country: None (occurrence: None)
  Receive Date: 20100416
  Receipt Date: 20100406
  Transmission Date: 20101027
  Serious: Yes (Hospitalization)
  Sender: FDA-Public Use
  Company Number: DE-BIOGENIDEC-2010BI002925

PATIENT
  Age: 39 Year
  Sex: Male

DRUGS (1)
  1. AVONEX [Suspect]
     Indication: RELAPSING-REMITTING MULTIPLE SCLEROSIS
     Route: 030
     Dates: start: 20100122, end: 20100122

REACTIONS (3)
  - CHILLS [None]
  - DIPLEGIA [None]
  - UHTHOFF'S PHENOMENON [None]
